FAERS Safety Report 22136503 (Version 1)
Quarter: 2023Q1

REPORT INFORMATION
  Report Type: Spontaneous
  Country: US (occurrence: US)
  Receive Date: 20230324
  Receipt Date: 20230324
  Transmission Date: 20230418
  Serious: No
  Sender: FDA-Public Use
  Company Number: US-IDORSIA-004053-2023-US

PATIENT
  Sex: Female

DRUGS (1)
  1. QUVIVIQ [Suspect]
     Active Substance: DARIDOREXANT
     Indication: Insomnia
     Dosage: 50 MG, QD
     Route: 048

REACTIONS (7)
  - Feeling abnormal [Unknown]
  - Disturbance in attention [Unknown]
  - Palpitations [Unknown]
  - Tremor [Unknown]
  - Somnolence [Unknown]
  - Migraine [Unknown]
  - Insomnia [Unknown]
